FAERS Safety Report 5018637-8 (Version None)
Quarter: 2006Q2

REPORT INFORMATION
  Report Type: 
  Country: None (occurrence: None)
  Receive Date: 20060414
  Receipt Date: 20060102
  Transmission Date: 20061013
  Serious: No
  Sender: FDA-Public Use
  Company Number: 2006SP000003

PATIENT
  Age: 63 Year
  Sex: Male
  Weight: 98.4306 kg

DRUGS (6)
  1. LUNESTA [Suspect]
     Indication: INSOMNIA
     Dosage: 2 MG;ORAL
     Route: 048
     Dates: start: 20051201, end: 20051201
  2. ACETYLSALICYLIC ACID SRT [Concomitant]
  3. ATORVASTATIN CALCIUM [Concomitant]
  4. VITAMINS [Concomitant]
  5. DHEA [Concomitant]
  6. Q10 [Concomitant]

REACTIONS (2)
  - DYSGEUSIA [None]
  - MALAISE [None]
